FAERS Safety Report 23150545 (Version 2)
Quarter: 2023Q4

REPORT INFORMATION
  Report Type: Report from Study
  Country: US (occurrence: US)
  Receive Date: 20231106
  Receipt Date: 20231109
  Transmission Date: 20240109
  Serious: Yes (Hospitalization, Other)
  Sender: FDA-Public Use
  Company Number: US-ABBVIE-5477406

PATIENT
  Age: 85 Year
  Sex: Female

DRUGS (1)
  1. HUMIRA [Suspect]
     Active Substance: ADALIMUMAB
     Indication: Crohn^s disease
     Route: 058
     Dates: start: 20220623

REACTIONS (8)
  - Diverticulitis [Recovered/Resolved]
  - Foot fracture [Unknown]
  - Rib fracture [Unknown]
  - Pain [Unknown]
  - Insomnia [Unknown]
  - Loss of consciousness [Unknown]
  - Fall [Unknown]
  - Loss of consciousness [Recovered/Resolved]

NARRATIVE: CASE EVENT DATE: 20231001
